FAERS Safety Report 5226008-4 (Version None)
Quarter: 2007Q1

REPORT INFORMATION
  Report Type: 
  Country: None (occurrence: None)
  Receive Date: 20070129
  Receipt Date: 20070123
  Transmission Date: 20070707
  Serious: Yes (Hospitalization)
  Sender: FDA-Public Use
  Company Number: 152149USA

PATIENT
  Age: 70 Year
  Sex: Male

DRUGS (3)
  1. SALBUTAMOL SULFATE INHALATION, 0.09 MG (SALBUTAMOL) [Suspect]
     Dosage: ORAL
     Route: 048
     Dates: start: 20060601
  2. SERETIDE [Concomitant]
  3. TIOTROPIUM BROMIDE [Concomitant]

REACTIONS (1)
  - PNEUMONIA [None]
